FAERS Safety Report 6824781-2 (Version None)
Quarter: 2010Q3

REPORT INFORMATION
  Report Type: 
  Country: None (occurrence: None)
  Receive Date: 20100708
  Receipt Date: 20061120
  Transmission Date: 20110219
  Serious: No
  Sender: FDA-Public Use
  Company Number: US-PFIZER INC-2006143864

PATIENT
  Sex: Female

DRUGS (4)
  1. CHANTIX [Suspect]
  2. THYROID TAB [Concomitant]
  3. ASPIRIN [Concomitant]
  4. TOPROL-XL [Concomitant]

REACTIONS (2)
  - LETHARGY [None]
  - NAUSEA [None]
